FAERS Safety Report 15997845 (Version 2)
Quarter: 2020Q1

REPORT INFORMATION
  Report Type: Report from Study
  Country: SI (occurrence: SI)
  Receive Date: 20190222
  Receipt Date: 20200320
  Transmission Date: 20200409
  Serious: Yes (Death)
  Sender: FDA-Public Use
  Company Number: SI-B.I. PHARMACEUTICALS,INC./RIDGEFIELD-2019-BI-007348

PATIENT
  Age: 85 Year
  Sex: Female

DRUGS (4)
  1. PRAXBIND [Suspect]
     Active Substance: IDARUCIZUMAB
     Indication: PERITONITIS
  2. PRAXBIND [Suspect]
     Active Substance: IDARUCIZUMAB
     Indication: SURGERY
  3. PRAXBIND [Suspect]
     Active Substance: IDARUCIZUMAB
     Indication: PROCOAGULANT THERAPY
     Dosage: 50-ML BOLUS INFUSIONS
     Route: 042
  4. PRAXBIND [Suspect]
     Active Substance: IDARUCIZUMAB
     Indication: GASTRIC PERFORATION
     Dosage: 50-ML BOLUS INFUSIONS
     Route: 042

REACTIONS (1)
  - Septic shock [Fatal]
